FAERS Safety Report 6603059-6 (Version None)
Quarter: 2010Q1

REPORT INFORMATION
  Report Type: 
  Country: None (occurrence: None)
  Receive Date: 20100226
  Receipt Date: 20100215
  Transmission Date: 20100710
  Serious: Yes (Hospitalization)
  Sender: FDA-Public Use
  Company Number: PHHY2010JP09067

PATIENT
  Age: 70 Year
  Sex: Female
  Weight: 33 kg

DRUGS (4)
  1. DICLOFENAC SODIUM [Suspect]
     Dosage: UNK
     Route: 048
  2. LOXOPROFEN SODIUM [Suspect]
     Dosage: UNK
     Route: 048
  3. FAMOTIDINE [Suspect]
     Dosage: UNK
     Route: 048
  4. SOFALCONE [Suspect]
     Route: 048

REACTIONS (1)
  - INTERSTITIAL LUNG DISEASE [None]
